FAERS Safety Report 22084735 (Version 1)
Quarter: 2023Q1

REPORT INFORMATION
  Report Type: Spontaneous
  Country: US (occurrence: US)
  Receive Date: 20230310
  Receipt Date: 20230310
  Transmission Date: 20230418
  Serious: Yes (Other)
  Sender: FDA-Public Use
  Company Number: US-002147023-NVSC2023US055688

PATIENT
  Age: 4 Year
  Sex: Male

DRUGS (4)
  1. CARBOPLATIN [Suspect]
     Active Substance: CARBOPLATIN
     Indication: Glioneuronal tumour
     Dosage: UNK
     Route: 065
  2. CARBOPLATIN [Suspect]
     Active Substance: CARBOPLATIN
     Indication: Metastases to meninges
  3. VINCRISTINE [Suspect]
     Active Substance: VINCRISTINE
     Indication: Glioneuronal tumour
     Dosage: UNK
     Route: 065
  4. VINCRISTINE [Suspect]
     Active Substance: VINCRISTINE
     Indication: Metastases to meninges

REACTIONS (3)
  - Anaphylactic reaction [Unknown]
  - Product use issue [Unknown]
  - Product use in unapproved indication [Unknown]
